FAERS Safety Report 25122915 (Version 1)
Quarter: 2025Q1

REPORT INFORMATION
  Report Type: Spontaneous
  Country: FR (occurrence: FR)
  Receive Date: 20250326
  Receipt Date: 20250326
  Transmission Date: 20250409
  Serious: Yes (Other)
  Sender: SANOFI AVENTIS
  Company Number: None

PATIENT
  Age: 0 Year
  Sex: Male
  Weight: 2.225 kg

DRUGS (10)
  1. APIXABAN [Suspect]
     Active Substance: APIXABAN
     Indication: Cardiac disorder
     Dosage: 2 DF, QD (1 MORNING, 1 EVENING)
     Route: 064
     Dates: end: 20240104
  2. FUROSEMIDE [Suspect]
     Active Substance: FUROSEMIDE
     Indication: Cardiac disorder
     Dosage: 40 MG, QD (40 MG/DAY, THEN INCREASED TO 80 MG/DAY DURING PREGNANCY)
     Route: 064
  3. FUROSEMIDE [Suspect]
     Active Substance: FUROSEMIDE
     Dosage: 80 MG, QD (40 MG/DAY, THEN INCREASED TO 80 MG/DAY DURING PREGNANCY)
     Route: 064
     Dates: end: 20240104
  4. LOVENOX [Suspect]
     Active Substance: ENOXAPARIN SODIUM
     Indication: Cardiac disorder
     Dosage: 12000 IU, QD (6000 IU X 2/D)
     Route: 064
     Dates: end: 20240104
  5. LOVENOX [Suspect]
     Active Substance: ENOXAPARIN SODIUM
     Indication: Product used for unknown indication
     Route: 064
     Dates: start: 20240104, end: 20240122
  6. ALDACTONE [Suspect]
     Active Substance: SPIRONOLACTONE
     Indication: Cardiac disorder
     Dosage: 25 MG, QD
     Route: 064
     Dates: end: 20240104
  7. DAPAGLIFLOZIN [Suspect]
     Active Substance: DAPAGLIFLOZIN
     Indication: Cardiac disorder
     Dosage: 10 MG, QD
     Route: 064
     Dates: end: 20240104
  8. ENTRESTO [Suspect]
     Active Substance: SACUBITRIL\VALSARTAN
     Indication: Cardiac disorder
     Dosage: 2 DF, QD (1 MORNING, 1 EVENING)
     Route: 064
     Dates: end: 20240104
  9. BISOPROLOL FUMARATE [Suspect]
     Active Substance: BISOPROLOL FUMARATE
     Indication: Cardiac disorder
     Dosage: 2.5 MG, QD
     Route: 064
     Dates: end: 20240104
  10. INNOHEP [Suspect]
     Active Substance: TINZAPARIN SODIUM
     Indication: Cardiac disorder
     Dosage: 175 IU/KG, QD
     Route: 064
     Dates: start: 20240122, end: 20240724

REACTIONS (3)
  - Premature baby [Recovered/Resolved]
  - Low birth weight baby [Recovered/Resolved]
  - Maternal exposure during pregnancy [Unknown]

NARRATIVE: CASE EVENT DATE: 20240724
